FAERS Safety Report 6014065-7 (Version None)
Quarter: 2008Q4

REPORT INFORMATION
  Report Type: 
  Country: None (occurrence: None)
  Receive Date: 20081219
  Receipt Date: 20071211
  Transmission Date: 20090506
  Serious: No
  Sender: FDA-Public Use
  Company Number: A0695010A

PATIENT
  Age: 68 Year
  Sex: Male

DRUGS (3)
  1. AVODART [Suspect]
     Indication: PROPHYLAXIS
     Route: 048
     Dates: end: 20070101
  2. ACIPHEX [Concomitant]
  3. ALLOPURINOL [Concomitant]

REACTIONS (1)
  - DYSURIA [None]
